FAERS Safety Report 26208933 (Version 1)
Quarter: 2025Q4

REPORT INFORMATION
  Report Type: Spontaneous
  Country: US (occurrence: US)
  Receive Date: 20251229
  Receipt Date: 20251229
  Transmission Date: 20260117
  Serious: No
  Sender: BAYER HEALTHCARE LLC
  Company Number: US-BAYER-2025A169695

PATIENT
  Age: 71 Year
  Sex: Male

DRUGS (3)
  1. ALEVE BACK AND MUSCLE PAIN [Suspect]
     Active Substance: NAPROXEN SODIUM
     Indication: Pain
     Dosage: TAKE 2 TABLETS, THE FIRST DOSE, THEN 1.(1 MONTH ,NO REGURARLY)
     Route: 048
     Dates: start: 202511, end: 20251221
  2. UNSPECIFIED INGREDIENT [Concomitant]
     Active Substance: UNSPECIFIED INGREDIENT
  3. NEXIUM [Concomitant]
     Active Substance: ESOMEPRAZOLE MAGNESIUM

REACTIONS (1)
  - Therapeutic product effect incomplete [Unknown]
